FAERS Safety Report 8493112-7 (Version None)
Quarter: 2012Q3

REPORT INFORMATION
  Report Type: 
  Country: None (occurrence: None)
  Receive Date: 20120706
  Receipt Date: 20120627
  Transmission Date: 20120928
  Serious: Yes (Hospitalization)
  Sender: FDA-Public Use
  Company Number: US-JNJFOC-20120701291

PATIENT
  Age: 59 Year
  Sex: Female
  Weight: 72.56 kg

DRUGS (9)
  1. ETANERCEPT [Concomitant]
     Indication: RHEUMATOID ARTHRITIS
     Route: 065
  2. FLUTICASONE PROPIONATE [Concomitant]
     Indication: DYSPNOEA
     Route: 065
  3. FOLIC ACID [Concomitant]
     Indication: RHEUMATOID ARTHRITIS
     Route: 065
  4. PRAVASTATIN [Concomitant]
     Route: 065
  5. FLUTICASONE PROPIONATE [Concomitant]
     Route: 065
  6. NICOTROL [Suspect]
     Indication: SMOKING CESSATION THERAPY
     Route: 065
     Dates: start: 20120309, end: 20120516
  7. FLUTICASONE PROPIONATE [Concomitant]
     Route: 065
  8. FLUTICASONE PROPIONATE [Concomitant]
     Indication: NASAL CONGESTION
     Route: 065
  9. METHOTREXATE [Concomitant]
     Indication: OSTEOPOROSIS
     Route: 065

REACTIONS (2)
  - HYPERTENSION [None]
  - HEADACHE [None]
